FAERS Safety Report 11950152 (Version 2)
Quarter: 2016Q1

REPORT INFORMATION
  Report Type: Spontaneous
  Country: GR (occurrence: GR)
  Receive Date: 20160126
  Receipt Date: 20160202
  Transmission Date: 20160526
  Serious: Yes (Life-Threatening, Hospitalization, Other)
  Sender: FDA-Public Use
  Company Number: GR-EMD SERONO-8063688

PATIENT
  Age: 68 Year
  Sex: Female
  Weight: 48 kg

DRUGS (2)
  1. REBIF [Suspect]
     Active Substance: INTERFERON BETA-1A
     Indication: RELAPSING-REMITTING MULTIPLE SCLEROSIS
     Route: 058
     Dates: start: 20070101, end: 20151215
  2. REBIF [Suspect]
     Active Substance: INTERFERON BETA-1A
     Dosage: REBIF RESUMED
     Route: 058

REACTIONS (11)
  - Headache [Unknown]
  - Craniocerebral injury [Recovering/Resolving]
  - Lymphopenia [Recovering/Resolving]
  - Thrombotic thrombocytopenic purpura [Recovering/Resolving]
  - Coma [Recovered/Resolved]
  - Acute kidney injury [Recovered/Resolved]
  - Fall [Unknown]
  - Hypertensive crisis [Recovering/Resolving]
  - Autoimmune disorder [Unknown]
  - Posterior reversible encephalopathy syndrome [Recovering/Resolving]
  - Multiple sclerosis relapse [Unknown]

NARRATIVE: CASE EVENT DATE: 20151216
